FAERS Safety Report 5341201-8 (Version None)
Quarter: 2007Q2

REPORT INFORMATION
  Report Type: 
  Country: None (occurrence: None)
  Receive Date: 20070531
  Receipt Date: 20070522
  Transmission Date: 20071010
  Serious: Yes (Hospitalization)
  Sender: FDA-Public Use
  Company Number: GR-ABBOTT-07P-066-0368983-00

PATIENT
  Age: 57 Year
  Sex: Female
  Weight: 85 kg

DRUGS (10)
  1. ZEMPLAR [Suspect]
     Indication: HYPERPARATHYROIDISM SECONDARY
     Route: 042
     Dates: start: 20070403, end: 20070505
  2. ZEMPLAR [Suspect]
     Route: 042
     Dates: start: 20070207, end: 20070306
  3. ZEMPLAR [Suspect]
     Route: 042
     Dates: start: 20070306, end: 20070403
  4. DARBEPOETIN ALFA [Concomitant]
     Indication: ANAEMIA
     Route: 042
     Dates: start: 20020101
  5. TICLOPIDINE HYDROCHLORIDE [Concomitant]
     Indication: ANTICOAGULANT THERAPY
     Route: 048
     Dates: start: 20020101
  6. MAGNESIUM SULFATE [Concomitant]
     Indication: UNEVALUABLE EVENT
     Route: 048
     Dates: start: 20060601
  7. MAGNESIUM SULFATE [Concomitant]
     Indication: BLOOD PHOSPHORUS ABNORMAL
  8. FOLIC ACID [Concomitant]
     Indication: ANAEMIA
     Route: 048
     Dates: start: 20020101
  9. TITRALAC [Concomitant]
     Indication: UNEVALUABLE EVENT
     Route: 048
     Dates: start: 20020101
  10. TITRALAC [Concomitant]
     Indication: BLOOD PHOSPHORUS ABNORMAL

REACTIONS (4)
  - ABDOMINAL PAIN [None]
  - DIARRHOEA [None]
  - GASTROENTERITIS [None]
  - VOMITING [None]
